FAERS Safety Report 6097632-4 (Version None)
Quarter: 2009Q1

REPORT INFORMATION
  Report Type: 
  Country: None (occurrence: None)
  Receive Date: 20090227
  Receipt Date: 20090219
  Transmission Date: 20090719
  Serious: Yes (Death, Other)
  Sender: FDA-Public Use
  Company Number: US-WYE-H08311909

PATIENT
  Sex: Female

DRUGS (3)
  1. PREMARIN [Suspect]
  2. PROMETRIUM [Suspect]
  3. PROVERA [Suspect]

REACTIONS (1)
  - ENDOMETRIAL CANCER METASTATIC [None]
